FAERS Safety Report 18024324 (Version 8)
Quarter: 2021Q2

REPORT INFORMATION
  Report Type: Report from Study
  Country: US (occurrence: US)
  Receive Date: 20200714
  Receipt Date: 20210615
  Transmission Date: 20210717
  Serious: Yes (Hospitalization)
  Sender: FDA-Public Use
  Company Number: NVSC2020US197506

PATIENT
  Sex: Female

DRUGS (2)
  1. COSENTYX [Suspect]
     Active Substance: SECUKINUMAB
     Indication: ANKYLOSING SPONDYLITIS
     Dosage: UNK
     Route: 065
  2. COSENTYX [Suspect]
     Active Substance: SECUKINUMAB
     Dosage: 150 MG, QMO
     Route: 058

REACTIONS (12)
  - Fatigue [Unknown]
  - Asthma [Unknown]
  - Gait disturbance [Unknown]
  - Peripheral swelling [Unknown]
  - Migraine [Unknown]
  - Pain [Recovering/Resolving]
  - Local reaction [Unknown]
  - Skin swelling [Unknown]
  - Arthropod bite [Unknown]
  - Swelling face [Unknown]
  - Illness [Unknown]
  - Cough [Unknown]
